FAERS Safety Report 22055020 (Version 1)
Quarter: 2023Q1

REPORT INFORMATION
  Report Type: Spontaneous
  Country: FR (occurrence: FR)
  Receive Date: 20230302
  Receipt Date: 20230302
  Transmission Date: 20230417
  Serious: Yes (Life-Threatening, Hospitalization, Other)
  Sender: FDA-Public Use
  Company Number: FR-ABBVIE-22K-056-4291889-00

PATIENT
  Age: 34 Year
  Sex: Female
  Weight: 47 kg

DRUGS (4)
  1. ADALIMUMAB [Suspect]
     Active Substance: ADALIMUMAB
     Indication: Colitis ulcerative
     Dosage: 160 MG
     Route: 058
     Dates: start: 20220114, end: 20220114
  2. ADALIMUMAB [Suspect]
     Active Substance: ADALIMUMAB
     Dosage: 80 MG
     Route: 058
     Dates: start: 20220128, end: 20220128
  3. ADALIMUMAB [Suspect]
     Active Substance: ADALIMUMAB
     Dosage: 40 MG
     Route: 058
     Dates: start: 20220211, end: 20220211
  4. PENTASA [Concomitant]
     Active Substance: MESALAMINE
     Indication: Product used for unknown indication
     Dosage: UNK
     Route: 065

REACTIONS (12)
  - Chronic inflammatory demyelinating polyradiculoneuropathy [Recovering/Resolving]
  - Motor dysfunction [Recovering/Resolving]
  - Dysphagia [Recovering/Resolving]
  - Acute polyneuropathy [Recovered/Resolved]
  - Speech disorder [Recovering/Resolving]
  - Guillain-Barre syndrome [Recovered/Resolved]
  - Muscular weakness [Recovering/Resolving]
  - Asthenia [Recovering/Resolving]
  - COVID-19 [Unknown]
  - Gait disturbance [Recovering/Resolving]
  - Hypoaesthesia oral [Recovering/Resolving]
  - Paraesthesia [Recovering/Resolving]

NARRATIVE: CASE EVENT DATE: 20220201
